FAERS Safety Report 6110371-6 (Version None)
Quarter: 2009Q1

REPORT INFORMATION
  Report Type: 
  Country: None (occurrence: None)
  Receive Date: 20090310
  Receipt Date: 20090226
  Transmission Date: 20090719
  Serious: Yes (Hospitalization, Other)
  Sender: FDA-Public Use
  Company Number: JP-PFIZER INC-2008082474

PATIENT

DRUGS (3)
  1. FARMORUBICIN [Suspect]
     Indication: BREAST CANCER
     Dosage: 150 MG, 1X/DAY
     Route: 042
     Dates: start: 20070301, end: 20070301
  2. ENDOXAN [Suspect]
     Indication: BREAST CANCER
     Dosage: 750 MG, 1X/DAY
     Route: 042
     Dates: start: 20070301, end: 20070301
  3. FLUOROURACIL [Suspect]
     Indication: BREAST CANCER
     Dosage: 750 MG, 1X/DAY
     Route: 042
     Dates: start: 20070301, end: 20070301

REACTIONS (3)
  - APPENDICITIS [None]
  - BRAIN ABSCESS [None]
  - WHITE BLOOD CELL COUNT DECREASED [None]
